FAERS Safety Report 20571228 (Version 1)
Quarter: 2022Q1

REPORT INFORMATION
  Report Type: Spontaneous
  Country: CA (occurrence: CA)
  Receive Date: 20220309
  Receipt Date: 20220309
  Transmission Date: 20220423
  Serious: Yes (Death, Other)
  Sender: FDA-Public Use
  Company Number: CA-SA-SAC20220308000807

PATIENT
  Age: 50 Year
  Sex: Male

DRUGS (13)
  1. BUTYLSCOPOLAMINE BROMIDE [Suspect]
     Active Substance: BUTYLSCOPOLAMINE BROMIDE
  2. ACETAMINOPHEN [Suspect]
     Active Substance: ACETAMINOPHEN
  3. CITALOPRAM [Suspect]
     Active Substance: CITALOPRAM HYDROBROMIDE
  4. CLONAZEPAM [Suspect]
     Active Substance: CLONAZEPAM
  5. DOCUSATE SODIUM [Suspect]
     Active Substance: DOCUSATE SODIUM
  6. IRBESARTAN [Suspect]
     Active Substance: IRBESARTAN
  7. LEVETIRACETAM [Suspect]
     Active Substance: LEVETIRACETAM
  8. LITHIUM [Suspect]
     Active Substance: LITHIUM
  9. MORPHINE [Suspect]
     Active Substance: MORPHINE
  10. TOPIRAMATE [Suspect]
     Active Substance: TOPIRAMATE
  11. TRIHEXYPHENIDYL HYDROCHLORIDE [Suspect]
     Active Substance: TRIHEXYPHENIDYL HYDROCHLORIDE
  12. VALPROIC ACID [Suspect]
     Active Substance: VALPROIC ACID
  13. TIZANIDINE [Suspect]
     Active Substance: TIZANIDINE

REACTIONS (4)
  - Accidental death [Fatal]
  - Toxicity to various agents [Fatal]
  - Failure to suspend medication [Fatal]
  - Wrong patient received product [Fatal]
